FAERS Safety Report 6440559-6 (Version None)
Quarter: 2009Q4

REPORT INFORMATION
  Report Type: 
  Country: None (occurrence: None)
  Receive Date: 20091113
  Receipt Date: 20091102
  Transmission Date: 20100525
  Serious: Yes (Other)
  Sender: FDA-Public Use
  Company Number: TW-WATSON-2009-09312

PATIENT
  Age: 37 Year
  Sex: Female

DRUGS (5)
  1. TAMOXIFEN CITRATE (WATSON LABORATORIES) [Suspect]
     Indication: BREAST CANCER
     Dosage: UNK
     Dates: start: 20060401
  2. EPIRUBICIN HYDROCHLORIDE (WATSON LABORATORIES) [Suspect]
     Indication: BREAST CANCER
     Dosage: UNK
     Dates: start: 20060401
  3. CYCLOPHOSPHAMIDE [Suspect]
     Indication: BREAST CANCER
     Dosage: UNK
     Dates: start: 20060401
  4. GOSERELIN [Suspect]
     Indication: BREAST CANCER
     Dosage: UNK
     Dates: start: 20060401
  5. DOCETAXEL [Suspect]
     Indication: BREAST CANCER
     Dosage: UNK
     Dates: start: 20060401

REACTIONS (2)
  - OSTEOMYELITIS [None]
  - OSTEONECROSIS [None]
